FAERS Safety Report 4996832-1 (Version None)
Quarter: 2006Q2

REPORT INFORMATION
  Report Type: 
  Country: None (occurrence: None)
  Receive Date: 20060509
  Receipt Date: 20060126
  Transmission Date: 20061013
  Serious: Yes (Hospitalization)
  Sender: FDA-Public Use
  Company Number: US-MERCK-0601USA03253

PATIENT
  Age: 64 Year
  Sex: Female
  Weight: 77 kg

DRUGS (35)
  1. VIOXX [Suspect]
     Route: 048
     Dates: start: 20000324, end: 20040801
  2. OXYCODONE [Concomitant]
     Indication: PAIN
     Route: 065
     Dates: start: 20040701, end: 20040801
  3. PLAVIX [Concomitant]
     Route: 065
     Dates: start: 19981201, end: 20050501
  4. HYDROCHLOROTHIAZIDE [Concomitant]
     Route: 065
  5. METOPROLOL [Concomitant]
     Route: 065
     Dates: start: 20040501, end: 20040901
  6. NIACIN [Concomitant]
     Route: 065
     Dates: start: 20040501, end: 20050501
  7. PRAVASTATIN SODIUM [Concomitant]
     Route: 065
  8. SODIUM (UNSPECIFIED) [Concomitant]
     Route: 065
  9. SPIRONOLACTONE [Concomitant]
     Route: 065
     Dates: start: 20040501, end: 20040601
  10. TRIAMCINOLONE [Concomitant]
     Indication: PAIN
     Route: 065
     Dates: start: 20030401, end: 20050101
  11. VALSARTAN [Concomitant]
     Route: 065
  12. HYDROCODONE BITARTRATE + ACETAMINOPHEN [Concomitant]
     Indication: PAIN
     Route: 065
     Dates: start: 19990101, end: 20021201
  13. ALBUTEROL [Concomitant]
     Route: 065
  14. AZMACORT [Concomitant]
     Route: 065
  15. CALCIUM CARBONATE [Concomitant]
     Route: 065
  16. CATAPRES [Concomitant]
     Route: 065
     Dates: start: 20030401, end: 20050501
  17. COMBIVENT [Concomitant]
     Route: 065
  18. CYCLOBENZAPRINE HYDROCHLORIDE [Concomitant]
     Route: 065
  19. DOC-Q-LACE [Concomitant]
     Route: 065
  20. KETOCONAZOLE [Concomitant]
     Route: 065
  21. PEPCID [Concomitant]
     Route: 065
  22. SEREVENT [Concomitant]
     Route: 065
  23. PRAVACHOL [Concomitant]
     Indication: BLOOD CHOLESTEROL INCREASED
     Route: 065
     Dates: start: 20040501, end: 20050201
  24. DIOVAN [Concomitant]
     Route: 065
  25. ZESTRIL [Concomitant]
     Route: 065
  26. TOPROL-XL [Concomitant]
     Route: 065
     Dates: start: 20040501, end: 20050501
  27. HYDROCHLOROTHIAZIDE AND TRIAMTERENE [Concomitant]
     Route: 065
     Dates: start: 19981201, end: 20050501
  28. SENNA [Concomitant]
     Indication: PAIN
     Route: 065
     Dates: start: 20020901, end: 20030101
  29. CARTIA (DILTIAZEM HYDROCHLORIDE) [Concomitant]
     Route: 065
     Dates: start: 20010501, end: 20040601
  30. DILTIAZEM HYDROCHLORIDE [Concomitant]
     Route: 065
     Dates: start: 20000201, end: 20050501
  31. DEPAKOTE [Concomitant]
     Route: 065
  32. BISACODYL [Concomitant]
     Route: 065
  33. CLONIDINE [Concomitant]
     Route: 065
  34. LIPITOR [Concomitant]
     Indication: BLOOD CHOLESTEROL INCREASED
     Route: 065
     Dates: start: 19981201, end: 20020901
  35. CELEXA [Concomitant]
     Indication: DEPRESSION
     Route: 065
     Dates: start: 20000201, end: 20041101

REACTIONS (9)
  - ACUTE MYOCARDIAL INFARCTION [None]
  - ANGIONEUROTIC OEDEMA [None]
  - ARTHROPATHY [None]
  - ASTHMA [None]
  - CHEST PAIN [None]
  - HEMIPARESIS [None]
  - HYPERLIPIDAEMIA [None]
  - LOBAR PNEUMONIA [None]
  - PERIARTHRITIS [None]
